FAERS Safety Report 25212833 (Version 2)
Quarter: 2025Q2

REPORT INFORMATION
  Report Type: Spontaneous
  Country: GR (occurrence: GR)
  Receive Date: 20250418
  Receipt Date: 20250521
  Transmission Date: 20250716
  Serious: Yes (Disabling)
  Sender: BAYER HEALTHCARE PHARMACEUTICALS INC.
  Company Number: GR-MLMSERVICE-20250404-PI469218-00230-4

PATIENT
  Age: 67 Year
  Sex: Female

DRUGS (1)
  1. MOXIFLOXACIN [Suspect]
     Active Substance: MOXIFLOXACIN
     Route: 042
     Dates: start: 202303

REACTIONS (1)
  - Iris transillumination defect [Not Recovered/Not Resolved]

NARRATIVE: CASE EVENT DATE: 20230301
